FAERS Safety Report 21657779 (Version 6)
Quarter: 2023Q1

REPORT INFORMATION
  Report Type: Spontaneous
  Country: US (occurrence: US)
  Receive Date: 20221129
  Receipt Date: 20230323
  Transmission Date: 20230418
  Serious: Yes (Death, Hospitalization, Other)
  Sender: FDA-Public Use
  Company Number: US-Hikma Pharmaceuticals USA Inc.-US-H14001-22-02993

PATIENT
  Age: 73 Year
  Sex: Male
  Weight: 82.09 kg

DRUGS (15)
  1. ABIRATERONE [Suspect]
     Active Substance: ABIRATERONE
     Indication: Prostate cancer metastatic
     Route: 048
     Dates: start: 20220427
  2. PREDNISONE [Suspect]
     Active Substance: PREDNISONE
     Indication: Prostate cancer metastatic
     Route: 048
     Dates: start: 20220427
  3. ABEMACICLIB [Suspect]
     Active Substance: ABEMACICLIB
     Indication: Prostate cancer metastatic
     Dosage: UNKNOWN
     Route: 065
     Dates: start: 20220427
  4. RADIATION THERAPY [Suspect]
     Active Substance: RADIATION THERAPY
     Indication: Prostate cancer metastatic
     Dosage: THREE RADIATION TREATMENT SO FAR (WITH PLANS FOR FIVE FRACTIONS)
     Route: 065
  5. PANTOPRAZOLE [Concomitant]
     Active Substance: PANTOPRAZOLE
     Indication: Gastrooesophageal reflux disease
     Dosage: UNKNOWN
     Route: 065
     Dates: start: 2000
  6. SIMVASTATIN [Concomitant]
     Active Substance: SIMVASTATIN
     Indication: Blood cholesterol increased
     Dosage: UNKNOWN
     Route: 065
     Dates: start: 2012
  7. HYDROCHLOROTHIAZIDE\TELMISARTAN [Concomitant]
     Active Substance: HYDROCHLOROTHIAZIDE\TELMISARTAN
     Indication: Hypertension
     Dosage: UNKNOWN
     Route: 065
     Dates: start: 2014
  8. MESALAMINE [Concomitant]
     Active Substance: MESALAMINE
     Indication: Colitis
     Dosage: UNKNOWN
     Route: 065
     Dates: start: 2012
  9. HYDROXYCHLOROQUINE [Concomitant]
     Active Substance: HYDROXYCHLOROQUINE
     Indication: Prophylaxis
     Dosage: UNKNOWN
     Route: 065
     Dates: start: 2021
  10. XGEVA [Concomitant]
     Active Substance: DENOSUMAB
     Indication: Prophylaxis
     Dosage: UNKNOWN
     Route: 065
     Dates: start: 202203
  11. FIRMAGON [Concomitant]
     Active Substance: DEGARELIX ACETATE
     Indication: Prophylaxis
     Dosage: UNKNOWN
     Route: 065
     Dates: start: 202203
  12. CIPROFLOXACIN [Concomitant]
     Active Substance: CIPROFLOXACIN
     Indication: Prophylaxis
     Dosage: UNKNOWN
     Route: 065
     Dates: start: 202202, end: 20221018
  13. HYDROCODONE BITARTRATE AND ACETAMINOPHEN [Concomitant]
     Active Substance: ACETAMINOPHEN\HYDROCODONE BITARTRATE
     Indication: Prophylaxis
     Dosage: UNKNOWN
     Route: 065
     Dates: start: 202202, end: 20221018
  14. HYDRALAZINE [Concomitant]
     Active Substance: HYDRALAZINE HYDROCHLORIDE
     Indication: Hypertension
     Dosage: UNKNOWN
     Route: 065
     Dates: start: 20221018
  15. ATORVASTATIN [Concomitant]
     Active Substance: ATORVASTATIN
     Indication: Blood cholesterol increased
     Dosage: UNKNOWN
     Route: 065
     Dates: start: 20221019, end: 20221026

REACTIONS (43)
  - Muscle spasms [Not Recovered/Not Resolved]
  - Central nervous system lesion [Not Recovered/Not Resolved]
  - Hemiparesis [Not Recovered/Not Resolved]
  - Leukocytosis [Not Recovered/Not Resolved]
  - Tachycardia [Not Recovered/Not Resolved]
  - Seizure [Not Recovered/Not Resolved]
  - Brain oedema [Not Recovered/Not Resolved]
  - Oedema peripheral [Not Recovered/Not Resolved]
  - Metastases to central nervous system [Not Recovered/Not Resolved]
  - Headache [Not Recovered/Not Resolved]
  - Visual impairment [Not Recovered/Not Resolved]
  - Cough [Not Recovered/Not Resolved]
  - Dizziness [Not Recovered/Not Resolved]
  - Therapy non-responder [Unknown]
  - Sepsis [Unknown]
  - Disease progression [Unknown]
  - Muscular weakness [Unknown]
  - Transverse sinus thrombosis [Unknown]
  - Aspartate aminotransferase increased [Unknown]
  - Basophil count decreased [Unknown]
  - Blood alkaline phosphatase increased [Unknown]
  - Blood calcium decreased [Unknown]
  - Blood creatinine decreased [Unknown]
  - Blood glucose increased [Unknown]
  - Blood potassium decreased [Unknown]
  - Blood urea increased [Unknown]
  - Eosinophil count decreased [Unknown]
  - Haematocrit decreased [Unknown]
  - Haemoglobin decreased [Unknown]
  - International normalised ratio increased [Unknown]
  - Lymphocyte count decreased [Unknown]
  - Neutrophil count increased [Unknown]
  - Protein total decreased [Unknown]
  - Prothrombin time ratio increased [Unknown]
  - Red blood cell count decreased [Unknown]
  - White blood cell count increased [Unknown]
  - Intracranial mass [Unknown]
  - Peripheral swelling [Unknown]
  - Electrocardiogram abnormal [Unknown]
  - Metastases to bone [Unknown]
  - Metastases to spine [Unknown]
  - Metastases to liver [Unknown]
  - Death [Fatal]

NARRATIVE: CASE EVENT DATE: 20221018
